FAERS Safety Report 4463050-5 (Version None)
Quarter: 2004Q3

REPORT INFORMATION
  Report Type: 
  Country: None (occurrence: None)
  Receive Date: 20040928
  Receipt Date: 20040915
  Transmission Date: 20050211
  Serious: Yes (Hospitalization)
  Sender: FDA-Public Use
  Company Number: HQWYE113217SEP04

PATIENT
  Age: 24 Year
  Sex: Female
  Weight: 81.72 kg

DRUGS (2)
  1. EFFEXOR XR [Suspect]
     Indication: PANIC ATTACK
     Dosage: 75 MG 1X PER 1 DAY, ORAL; 150 MG 1X PER 1DAY, ORAL; 225 MG 1X PER 1DAY, ORAL; 300 MG 1X PER 1 DAY,PO
     Route: 048
     Dates: start: 20010801
  2. TYLENOL [Concomitant]

REACTIONS (11)
  - ANTEPARTUM HAEMORRHAGE [None]
  - BRONCHITIS [None]
  - CERVICAL INCOMPETENCE [None]
  - DRUG EXPOSURE DURING PREGNANCY [None]
  - FALSE LABOUR [None]
  - MIGRAINE [None]
  - PAIN [None]
  - PELVIC PAIN [None]
  - PREMATURE LABOUR [None]
  - SINUSITIS [None]
  - VAGINAL HAEMORRHAGE [None]
